FAERS Safety Report 4430009-3 (Version None)
Quarter: 2004Q3

REPORT INFORMATION
  Report Type: 
  Country: None (occurrence: None)
  Receive Date: 20040817
  Receipt Date: 20040804
  Transmission Date: 20050211
  Serious: Yes (Hospitalization)
  Sender: FDA-Public Use
  Company Number: EM2004-0407

PATIENT
  Age: 60 Year
  Sex: Female

DRUGS (9)
  1. PROLEUKIN [Suspect]
     Indication: MALIGNANT MELANOMA
     Dosage: Q3 WKSX 14 DYS, INTRAVENOUS
     Route: 042
     Dates: start: 20040707, end: 20040721
  2. CISPLATIN [Suspect]
     Indication: MALIGNANT MELANOMA
     Dosage: Q3 WKSX 14 DYS,
  3. VINBLASTINE SULFATE [Suspect]
     Indication: MALIGNANT MELANOMA
     Dosage: Q3 WKSX 14 DYS,
  4. DACARBAZINE [Suspect]
     Indication: MALIGNANT MELANOMA
     Dosage: Q3 WKSX 14 DYS,
  5. INTERFERON (INTERFERON) [Suspect]
     Indication: MALIGNANT MELANOMA
     Dosage: Q3 WKSX 14 DYS,
  6. SYNTHROID [Concomitant]
  7. ZOFRAN [Concomitant]
  8. HYDROMORPHONE HCL [Concomitant]
  9. NICARDIPINE (NICARDIPINE) [Concomitant]

REACTIONS (7)
  - BRAIN OEDEMA [None]
  - COMA [None]
  - HYPERTENSION [None]
  - LEUKOENCEPHALOPATHY [None]
  - POST PROCEDURAL NAUSEA [None]
  - POST PROCEDURAL VOMITING [None]
  - SPEECH DISORDER [None]
